FAERS Safety Report 6199966-1 (Version None)
Quarter: 2009Q2

REPORT INFORMATION
  Report Type: 
  Country: None (occurrence: None)
  Receive Date: 20090522
  Receipt Date: 20090514
  Transmission Date: 20091009
  Serious: Yes (Other)
  Sender: FDA-Public Use
  Company Number: CN-TYCO HEALTHCARE/MALLINCKRODT-T200900895

PATIENT
  Age: 64 Year
  Sex: Male

DRUGS (1)
  1. OPTIRAY 300 [Suspect]
     Indication: COMPUTERISED TOMOGRAM THORAX
     Dosage: 80 ML, SINGLE
     Dates: start: 20090414, end: 20090414

REACTIONS (7)
  - ANAPHYLACTOID REACTION [None]
  - ANURIA [None]
  - BLOOD PRESSURE DECREASED [None]
  - CHEST DISCOMFORT [None]
  - HEART RATE INCREASED [None]
  - PALLOR [None]
  - WHEEZING [None]
